FAERS Safety Report 5302930-5 (Version None)
Quarter: 2007Q2

REPORT INFORMATION
  Report Type: 
  Country: None (occurrence: None)
  Receive Date: 20070420
  Receipt Date: 20070406
  Transmission Date: 20071010
  Serious: Yes (Other)
  Sender: FDA-Public Use
  Company Number: PHNU2007SI01556

PATIENT
  Age: 72 Year
  Sex: Male

DRUGS (4)
  1. LESCOL XL [Suspect]
     Indication: DYSLIPIDAEMIA
     Dosage: 80 MG, QD
     Route: 048
     Dates: start: 20020601, end: 20070201
  2. PREXANIL [Concomitant]
     Dosage: 4 MG, QD
     Route: 048
  3. BLOKSAN [Concomitant]
     Dosage: 100MG-50MG+25MG/DAY
  4. ACETYLSALICYLIC ACID SRT [Concomitant]
     Dosage: 100 MG, QD
     Route: 048

REACTIONS (1)
  - PAIN IN EXTREMITY [None]
